FAERS Safety Report 20834559 (Version 1)
Quarter: 2022Q2

REPORT INFORMATION
  Report Type: Spontaneous
  Country: US (occurrence: US)
  Receive Date: 20220516
  Receipt Date: 20220516
  Transmission Date: 20220721
  Serious: No
  Sender: FDA-Public Use
  Company Number: US-BAYER-2022A054932

PATIENT
  Age: 55 Year
  Sex: Female

DRUGS (3)
  1. MOXIFLOXACIN [Suspect]
     Active Substance: MOXIFLOXACIN
     Indication: Acanthamoeba keratitis
  2. BACITRACIN [Concomitant]
     Active Substance: BACITRACIN
     Indication: Acanthamoeba keratitis
  3. POLYMYXIN B [Concomitant]
     Active Substance: POLYMYXIN B
     Indication: Acanthamoeba keratitis

REACTIONS (2)
  - Off label use [None]
  - Drug ineffective for unapproved indication [None]
